FAERS Safety Report 12640195 (Version 1)
Quarter: 2016Q3

REPORT INFORMATION
  Report Type: Report from Study
  Country: US (occurrence: US)
  Receive Date: 20160810
  Receipt Date: 20160810
  Transmission Date: 20161109
  Serious: Yes (Hospitalization)
  Sender: FDA-Public Use
  Company Number: US-BIOGEN-2016BI00266981

PATIENT
  Age: 52 Year
  Sex: Female

DRUGS (4)
  1. ARMOUR THYROID [Concomitant]
     Active Substance: THYROID, PORCINE
     Indication: PRODUCT USED FOR UNKNOWN INDICATION
     Route: 048
  2. PROGESTIN [Concomitant]
     Active Substance: PROGESTERONE
     Indication: PRODUCT USED FOR UNKNOWN INDICATION
     Route: 065
  3. TYSABRI [Suspect]
     Active Substance: NATALIZUMAB
     Indication: MULTIPLE SCLEROSIS
     Dosage: INFUSED OVER 1 HOUR
     Route: 042
     Dates: start: 20130722
  4. ESTRADIOL. [Concomitant]
     Active Substance: ESTRADIOL
     Indication: PRODUCT USED FOR UNKNOWN INDICATION
     Route: 065

REACTIONS (8)
  - Arteriosclerosis [Unknown]
  - Ovarian cyst [Unknown]
  - Uterine leiomyoma [Unknown]
  - Spinal deformity [Unknown]
  - Infectious colitis [Recovered/Resolved]
  - Influenza like illness [Recovered/Resolved]
  - Appendicitis [Recovered/Resolved]
  - Umbilical hernia [Unknown]

NARRATIVE: CASE EVENT DATE: 20160608
